FAERS Safety Report 9007184 (Version 5)
Quarter: 2013Q2

REPORT INFORMATION
  Report Type: Spontaneous
  Country: US (occurrence: US)
  Receive Date: 20130110
  Receipt Date: 20130619
  Transmission Date: 20140414
  Serious: Yes (Other)
  Sender: FDA-Public Use
  Company Number: US-PFIZER INC-2013008420

PATIENT
  Age: 15 Year
  Sex: Female
  Weight: 68 kg

DRUGS (2)
  1. DEPO-PROVERA [Suspect]
     Indication: CONTRACEPTION
     Dosage: 150 MG, ONCE EVERY 3 MONTHS
     Route: 030
     Dates: start: 20120829, end: 20121126
  2. DEPO-PROVERA [Suspect]
     Dosage: 150 MG, ONLY 1 DOSE GIVEN
     Route: 030
     Dates: start: 20120829

REACTIONS (2)
  - Drug ineffective [Unknown]
  - Unintended pregnancy [Unknown]
